FAERS Safety Report 6546151-7 (Version None)
Quarter: 2010Q1

REPORT INFORMATION
  Report Type: 
  Country: None (occurrence: None)
  Receive Date: 20100122
  Receipt Date: 20100111
  Transmission Date: 20100710
  Serious: Yes (Hospitalization)
  Sender: FDA-Public Use
  Company Number: GB-RANBAXY-2010RR-30446

PATIENT
  Age: 9 Year
  Sex: Female

DRUGS (5)
  1. ACICLOVIR [Suspect]
     Indication: HERPES ZOSTER OPHTHALMIC
     Route: 048
  2. CEFTRIAXONE [Concomitant]
  3. FLOXACILLIN SODIUM [Concomitant]
  4. PREDNISOLONE [Concomitant]
  5. TETRACAINE HYDROCHLORIDE [Concomitant]

REACTIONS (9)
  - EYELID PTOSIS [None]
  - IIIRD NERVE PARALYSIS [None]
  - IVTH NERVE PARALYSIS [None]
  - NEUROPATHIC ULCER [None]
  - PARALYSIS [None]
  - SIGHT DISABILITY [None]
  - TRIGEMINAL PALSY [None]
  - UVEITIS [None]
  - VITH NERVE PARALYSIS [None]
